FAERS Safety Report 8295534-6 (Version None)
Quarter: 2012Q2

REPORT INFORMATION
  Report Type: 
  Country: None (occurrence: None)
  Receive Date: 20120418
  Receipt Date: 20120406
  Transmission Date: 20120825
  Serious: Yes (Other)
  Sender: FDA-Public Use
  Company Number: US-ELI_LILLY_AND_COMPANY-US201204003146

PATIENT
  Sex: Female

DRUGS (3)
  1. NEURONTIN                               /USA/ [Concomitant]
     Dosage: 600 MG, BID
  2. CYMBALTA [Suspect]
     Indication: DEPRESSION
     Dosage: 60 MG, QD
  3. ADDERALL 5 [Concomitant]
     Dosage: 30 MG, BID

REACTIONS (6)
  - DRUG DOSE OMISSION [None]
  - WRONG TECHNIQUE IN DRUG USAGE PROCESS [None]
  - GASTRIC BYPASS [None]
  - DYSPHAGIA [None]
  - FEELING ABNORMAL [None]
  - DISTURBANCE IN ATTENTION [None]
